FAERS Safety Report 9119436 (Version 2)
Quarter: 2013Q1

REPORT INFORMATION
  Report Type: Report from Study
  Country: FR (occurrence: FR)
  Receive Date: 20130226
  Receipt Date: 20130326
  Transmission Date: 20140127
  Serious: Yes (Hospitalization)
  Sender: FDA-Public Use
  Company Number: FR-ELI_LILLY_AND_COMPANY-FR201302003961

PATIENT
  Age: 67 Year
  Sex: 0
  Weight: 85 kg

DRUGS (10)
  1. PLACEBO [Suspect]
     Indication: PANCREATIC CARCINOMA
     Dosage: UNK
     Dates: start: 20130124
  2. GEMCITABINE HYDROCHLORIDE [Suspect]
     Indication: PANCREATIC CARCINOMA
     Dosage: 1000 MG/M2, WEEKLY (1/W)
     Route: 042
     Dates: start: 20130130
  3. XANAX [Concomitant]
     Indication: ANXIETY
     Dosage: UNK
     Dates: start: 1977
  4. OMEPRAZOLE [Concomitant]
     Indication: ABDOMINAL PAIN UPPER
     Dosage: UNK
     Dates: start: 2012
  5. TEGRETOL [Concomitant]
     Indication: ANXIETY
     Dosage: UNK
     Dates: start: 1977
  6. SUCRALFATE [Concomitant]
     Indication: GASTRIC ULCER
     Dosage: UNK
     Dates: start: 2012
  7. LANTUS [Concomitant]
     Indication: DIABETES MELLITUS
     Dosage: UNK
     Dates: start: 20120115
  8. NOVORAPID [Concomitant]
     Indication: DIABETES MELLITUS
     Dosage: UNK
     Dates: start: 20120115
  9. OXYCODONE [Concomitant]
     Indication: PAIN
     Dosage: UNK
     Dates: start: 201212
  10. PARACETAMOL [Concomitant]
     Indication: PAIN
     Dosage: UNK
     Dates: start: 201212

REACTIONS (1)
  - Sepsis [Recovered/Resolved]
